FAERS Safety Report 15690691 (Version 1)
Quarter: 2018Q4

REPORT INFORMATION
  Report Type: Spontaneous
  Country: US (occurrence: US)
  Receive Date: 20181205
  Receipt Date: 20181205
  Transmission Date: 20190205
  Serious: Yes (Other)
  Sender: FDA-Public Use
  Company Number: US-SA-2018SA068161

PATIENT
  Age: 42 Year
  Sex: Female
  Weight: 63.5 kg

DRUGS (12)
  1. PARAPLATIN [Concomitant]
     Active Substance: CARBOPLATIN
  2. NEULASTA [Concomitant]
     Active Substance: PEGFILGRASTIM
  3. TAXOTERE [Suspect]
     Active Substance: DOCETAXEL
     Indication: BREAST CANCER FEMALE
     Dosage: 75 MG/M2,Q3W
     Route: 042
     Dates: start: 20111026, end: 20111026
  4. XANAX [Concomitant]
     Active Substance: ALPRAZOLAM
  5. TAXOTERE [Suspect]
     Active Substance: DOCETAXEL
     Dosage: 75 MG/M2,Q3W
     Route: 042
     Dates: start: 20120208, end: 20120208
  6. DECADRON [DEXAMETHASONE] [Concomitant]
     Dosage: 20 MG, 1X
     Route: 042
  7. CARBOPLAT [Concomitant]
     Active Substance: CARBOPLATIN
     Dosage: 719 MG, 1X
     Route: 042
  8. ALOXI [Concomitant]
     Active Substance: PALONOSETRON HYDROCHLORIDE
     Dosage: 250 MG
  9. HERCEPTIN [Concomitant]
     Active Substance: TRASTUZUMAB
  10. PROCHLORPERAZINE. [Concomitant]
     Active Substance: PROCHLORPERAZINE
  11. WELLBUTRIN [Concomitant]
     Active Substance: BUPROPION HYDROCHLORIDE
  12. NEUPOGEN [Concomitant]
     Active Substance: FILGRASTIM
     Dosage: 480 MG

REACTIONS (2)
  - Psychological trauma [Unknown]
  - Alopecia [Recovering/Resolving]

NARRATIVE: CASE EVENT DATE: 20111111
